FAERS Safety Report 4383293-9 (Version None)
Quarter: 2004Q2

REPORT INFORMATION
  Report Type: 
  Country: None (occurrence: None)
  Receive Date: 20040618
  Receipt Date: 20040528
  Transmission Date: 20050107
  Serious: Yes (Hospitalization)
  Sender: FDA-Public Use
  Company Number: USA040668864

PATIENT
  Age: 80 Year
  Sex: Female

DRUGS (1)
  1. FORTEO [Suspect]
     Indication: OSTEOPOROSIS
     Dates: start: 20030701, end: 20030725

REACTIONS (4)
  - DIFFICULTY IN WALKING [None]
  - INCISIONAL DRAINAGE [None]
  - POST PROCEDURAL COMPLICATION [None]
  - STAPHYLOCOCCAL INFECTION [None]
